FAERS Safety Report 6791537-9 (Version None)
Quarter: 2010Q2

REPORT INFORMATION
  Report Type: 
  Country: None (occurrence: None)
  Receive Date: 20100624
  Receipt Date: 20080910
  Transmission Date: 20101027
  Serious: No
  Sender: FDA-Public Use
  Company Number: US-PFIZER INC-2008057364

PATIENT
  Sex: Female
  Weight: 72.727 kg

DRUGS (14)
  1. XALATAN [Suspect]
     Indication: GLAUCOMA
  2. TRUSOPT [Concomitant]
  3. DIGOXIN [Concomitant]
  4. ATENOLOL [Concomitant]
  5. DILTIAZEM [Concomitant]
  6. COZAAR [Concomitant]
  7. CLONIDINE [Concomitant]
  8. DIAZEPAM [Concomitant]
  9. POTASSIUM [Concomitant]
  10. ACETYLSALICYLIC ACID [Concomitant]
  11. MACRODANTIN [Concomitant]
  12. AMIODARONE HCL [Concomitant]
  13. HYDROCODONE [Concomitant]
  14. VITAMINS [Concomitant]

REACTIONS (3)
  - EYE BURNS [None]
  - EYE PAIN [None]
  - VISION BLURRED [None]
